FAERS Safety Report 14596074 (Version 1)
Quarter: 2018Q1

REPORT INFORMATION
  Report Type: Spontaneous
  Country: US (occurrence: US)
  Receive Date: 20180303
  Receipt Date: 20180303
  Transmission Date: 20180509
  Serious: No
  Sender: FDA-Public Use
  Company Number: US-GLAXOSMITHKLINE-US2018034433

PATIENT
  Age: 79 Year
  Sex: Male

DRUGS (13)
  1. VITAMIN B12 [Concomitant]
     Active Substance: CYANOCOBALAMIN
  2. COUMADIN [Concomitant]
     Active Substance: WARFARIN SODIUM
  3. LOSARTAN. [Concomitant]
     Active Substance: LOSARTAN
  4. GLIMEPIRIDE. [Concomitant]
     Active Substance: GLIMEPIRIDE
  5. LEXAPRO [Concomitant]
     Active Substance: ESCITALOPRAM OXALATE
  6. MEXILETINE [Concomitant]
     Active Substance: MEXILETINE
  7. MAGNESIUM [Concomitant]
     Active Substance: MAGNESIUM
  8. LOVASTATIN. [Concomitant]
     Active Substance: LOVASTATIN
  9. METFORMIN [Concomitant]
     Active Substance: METFORMIN HYDROCHLORIDE
  10. FUROSEMIDE. [Concomitant]
     Active Substance: FUROSEMIDE
  11. MAGNESIUM GLYCINATE [Concomitant]
     Active Substance: MAGNESIUM GLYCINATE
  12. METOPROLOL. [Concomitant]
     Active Substance: METOPROLOL
  13. ANORO ELLIPTA [Suspect]
     Active Substance: UMECLIDINIUM BROMIDE\VILANTEROL TRIFENATATE
     Indication: PRODUCT USE IN UNAPPROVED INDICATION
     Dosage: 1 PUFF(S), QD
     Route: 055
     Dates: start: 20180220, end: 20180222

REACTIONS (3)
  - Blood pressure increased [Recovered/Resolved]
  - Cough [Recovering/Resolving]
  - Blood glucose increased [Recovered/Resolved]

NARRATIVE: CASE EVENT DATE: 201802
